FAERS Safety Report 20870083 (Version 4)
Quarter: 2022Q3

REPORT INFORMATION
  Report Type: Spontaneous
  Country: JP (occurrence: JP)
  Receive Date: 20220525
  Receipt Date: 20220905
  Transmission Date: 20221026
  Serious: Yes (Death, Life-Threatening, Hospitalization, Disabling, Other)
  Sender: FDA-Public Use
  Company Number: JP-MSD-2205JPN002321J

PATIENT
  Age: 94 Year
  Sex: Male
  Weight: 55 kg

DRUGS (8)
  1. JANUVIA [Suspect]
     Active Substance: SITAGLIPTIN PHOSPHATE
     Indication: Type 2 diabetes mellitus
     Dosage: 25 MILLIGRAM, QD
     Route: 048
     Dates: end: 20220106
  2. VONOPRAZAN FUMARATE [Suspect]
     Active Substance: VONOPRAZAN FUMARATE
     Indication: Gastric ulcer
     Dosage: 20 MILLIGRAM, QD
     Route: 048
     Dates: end: 20220106
  3. LINZESS [Suspect]
     Active Substance: LINACLOTIDE
     Indication: Constipation
     Dosage: 0.25 MILLIGRAM, QD
     Route: 048
     Dates: end: 20220106
  4. ELOBIXIBAT [Suspect]
     Active Substance: ELOBIXIBAT
     Indication: Constipation
     Dosage: 5 MILLIGRAM, QD
     Route: 048
     Dates: end: 20220106
  5. CILOSTAZOL [Suspect]
     Active Substance: CILOSTAZOL
     Indication: Peripheral arterial occlusive disease
     Dosage: 100 MILLIGRAM, BID
     Route: 048
     Dates: end: 20220106
  6. DIMETHICONE [Suspect]
     Active Substance: DIMETHICONE
     Indication: Constipation
     Dosage: 80 MILLIGRAM, BID
     Route: 048
     Dates: end: 20220106
  7. PANTETHINE [Suspect]
     Active Substance: PANTETHINE
     Indication: Constipation
     Dosage: 1.0 GRAM, BID
     Route: 048
     Dates: end: 20220106
  8. HERBALS [Concomitant]
     Active Substance: HERBALS
     Indication: Constipation
     Dosage: 7.5 GRAM, TID
     Route: 048
     Dates: end: 20220106

REACTIONS (11)
  - Pneumonia staphylococcal [Fatal]
  - Pneumonia streptococcal [Fatal]
  - Hypophagia [Fatal]
  - Fall [Unknown]
  - Fracture [Unknown]
  - Diabetes mellitus inadequate control [Unknown]
  - Hypoglycaemic coma [Recovering/Resolving]
  - Oedema [Unknown]
  - Marasmus [Fatal]
  - Hypoglycaemia [Not Recovered/Not Resolved]
  - Respiratory disorder [Unknown]

NARRATIVE: CASE EVENT DATE: 20220101
